FAERS Safety Report 6435684-X (Version None)
Quarter: 2009Q4

REPORT INFORMATION
  Report Type: 
  Country: None (occurrence: None)
  Receive Date: 20091111
  Receipt Date: 20091029
  Transmission Date: 20100525
  Serious: Yes (Disabling, Other)
  Sender: FDA-Public Use
  Company Number: PHHY2009IT47399

PATIENT
  Age: 64 Year
  Sex: Male

DRUGS (4)
  1. ZOMETA [Suspect]
     Indication: PROSTATE CANCER
     Dosage: 4MG CYCLIC
     Route: 042
     Dates: start: 20030101, end: 20050401
  2. BUSERELIN ACETATE [Concomitant]
     Indication: PROSTATE CANCER
     Dosage: UNK
     Route: 058
     Dates: start: 20020701, end: 20040501
  3. CIPROFLOXACIN HYDROCHLORIDE [Concomitant]
     Dosage: 50 MG
     Route: 048
  4. CASODEX [Concomitant]
     Indication: PROSTATE CANCER
     Dosage: 50 MG
     Route: 048
     Dates: start: 20020701, end: 20040501

REACTIONS (4)
  - BONE DISORDER [None]
  - METASTASES TO BONE [None]
  - OSTEOMYELITIS [None]
  - OSTEONECROSIS [None]
